FAERS Safety Report 11934212 (Version 2)
Quarter: 2016Q1

REPORT INFORMATION
  Report Type: Report from Study
  Country: BR (occurrence: BR)
  Receive Date: 20160121
  Receipt Date: 20160322
  Transmission Date: 20160526
  Serious: Yes (Other)
  Sender: FDA-Public Use
  Company Number: BR-ASTRAZENECA-2016SE03771

PATIENT
  Age: 67 Year
  Sex: Male
  Weight: 98 kg

DRUGS (1)
  1. BRILINTA [Suspect]
     Active Substance: TICAGRELOR
     Indication: THROMBOSIS PROPHYLAXIS
     Dosage: TWO TIMES A DAY
     Route: 048
     Dates: start: 201411, end: 201511

REACTIONS (1)
  - Skin cancer [Unknown]

NARRATIVE: CASE EVENT DATE: 2015
